FAERS Safety Report 13485947 (Version 2)
Quarter: 2017Q2

REPORT INFORMATION
  Report Type: Spontaneous
  Country: US (occurrence: US)
  Receive Date: 20170426
  Receipt Date: 20170515
  Transmission Date: 20170830
  Serious: No
  Sender: FDA-Public Use
  Company Number: US-GLAXOSMITHKLINE-US2017059822

PATIENT
  Age: 49 Year
  Sex: Male

DRUGS (1)
  1. VALTREX [Suspect]
     Active Substance: VALACYCLOVIR HYDROCHLORIDE
     Indication: IRITIS
     Dosage: 3 G, QD
     Route: 048
     Dates: start: 201512

REACTIONS (2)
  - Product use in unapproved indication [Unknown]
  - Drug ineffective for unapproved indication [Not Recovered/Not Resolved]

NARRATIVE: CASE EVENT DATE: 201512
